FAERS Safety Report 4626020-X (Version None)
Quarter: 2005Q2

REPORT INFORMATION
  Report Type: 
  Country: None (occurrence: None)
  Receive Date: 20050404
  Receipt Date: 20050328
  Transmission Date: 20051028
  Serious: Yes (Hospitalization, Other)
  Sender: FDA-Public Use
  Company Number: US-JNJFOC-20050307272

PATIENT
  Sex: Male

DRUGS (7)
  1. DURAGESIC-100 [Suspect]
     Route: 062
  2. KEPPRA [Concomitant]
     Indication: EPILEPSY
     Route: 049
  3. TIAZAC [Concomitant]
     Indication: ANGINA PECTORIS
     Route: 049
  4. TOPROL-XL [Concomitant]
     Indication: ANGINA PECTORIS
     Route: 049
  5. DIOVAN [Concomitant]
     Indication: HYPERTENSION
     Dosage: 80/12.5 MG, ONE PER DAY
     Route: 049
  6. DIGITEK [Concomitant]
     Indication: ARRHYTHMIA
     Route: 049
  7. VYTORIN [Concomitant]
     Indication: BLOOD CHOLESTEROL INCREASED
     Route: 049

REACTIONS (5)
  - CERVICAL VERTEBRAL FRACTURE [None]
  - CONVULSION [None]
  - HEMIPLEGIA [None]
  - SPINAL COMPRESSION FRACTURE [None]
  - SPINAL CORD COMPRESSION [None]
